FAERS Safety Report 12656209 (Version 1)
Quarter: 2016Q3

REPORT INFORMATION
  Report Type: Spontaneous
  Country: US (occurrence: US)
  Receive Date: 20160816
  Receipt Date: 20160816
  Transmission Date: 20161109
  Serious: No
  Sender: FDA-Public Use
  Company Number: US-GALDERMA-US16000652

PATIENT
  Age: 65 Year
  Sex: Female

DRUGS (1)
  1. METROGEL [Suspect]
     Active Substance: METRONIDAZOLE
     Indication: DERMATITIS
     Dosage: 1%
     Route: 061
     Dates: start: 20160119, end: 20160125

REACTIONS (7)
  - Skin irritation [Unknown]
  - Erythema [Unknown]
  - Pruritus [Unknown]
  - Rosacea [Unknown]
  - Dermatitis [Unknown]
  - Acne [Unknown]
  - Intentional product use issue [Recovered/Resolved]

NARRATIVE: CASE EVENT DATE: 20160119
